FAERS Safety Report 16849555 (Version 2)
Quarter: 2019Q4

REPORT INFORMATION
  Report Type: Spontaneous
  Country: US (occurrence: US)
  Receive Date: 20190925
  Receipt Date: 20191205
  Transmission Date: 20200122
  Serious: No
  Sender: FDA-Public Use
  Company Number: US-009507513-1909USA006930

PATIENT
  Age: 20 Year
  Sex: Female
  Weight: 62.13 kg

DRUGS (2)
  1. NEXPLANON [Suspect]
     Active Substance: ETONOGESTREL
     Indication: CONTRACEPTION
     Dosage: 68 MG IMPLANT IN THE ARM, ONE ROD EVERY THREE YEARS
     Route: 059
     Dates: start: 20190613, end: 20191024
  2. NEXPLANON [Suspect]
     Active Substance: ETONOGESTREL
     Dosage: 68 MG IMPLANT IN THE ARM, ONE ROD EVERY THREE YEARS
     Route: 059
     Dates: start: 20191024

REACTIONS (3)
  - Muscle spasms [Unknown]
  - Medical device site movement impairment [Unknown]
  - Implant site pain [Recovering/Resolving]

NARRATIVE: CASE EVENT DATE: 2019
